FAERS Safety Report 4556600-1 (Version None)
Quarter: 2005Q1

REPORT INFORMATION
  Report Type: 
  Country: None (occurrence: None)
  Receive Date: 20050114
  Receipt Date: 20050103
  Transmission Date: 20050727
  Serious: Yes (Hospitalization, Other)
  Sender: FDA-Public Use
  Company Number: HQWYE943113DEC04

PATIENT
  Age: 48 Year
  Sex: Male

DRUGS (1)
  1. RAPAMUNE [Suspect]
     Indication: LIVER TRANSPLANT
     Dosage: 1 MG 1X PER 1 DAY
     Route: 048
     Dates: start: 20041101

REACTIONS (1)
  - PORTAL VEIN THROMBOSIS [None]
